FAERS Safety Report 12787792 (Version 2)
Quarter: 2016Q4

REPORT INFORMATION
  Report Type: Spontaneous
  Country: US (occurrence: US)
  Receive Date: 20160928
  Receipt Date: 20161230
  Transmission Date: 20170207
  Serious: No
  Sender: FDA-Public Use
  Company Number: US-009507513-1609USA006961

PATIENT
  Sex: Female

DRUGS (1)
  1. NEXPLANON [Suspect]
     Active Substance: ETONOGESTREL
     Dosage: 1 DF, UNK
     Route: 059
     Dates: start: 201409

REACTIONS (6)
  - Limb injury [Unknown]
  - Menstrual disorder [Unknown]
  - Device kink [Not Recovered/Not Resolved]
  - Menstruation normal [Unknown]
  - Breast tenderness [Unknown]
  - Pain in extremity [Unknown]
